FAERS Safety Report 7234252-X (Version None)
Quarter: 2011Q1

REPORT INFORMATION
  Report Type: 
  Country: None (occurrence: None)
  Receive Date: 20110119
  Receipt Date: 20110114
  Transmission Date: 20110831
  Serious: Yes (Death, Other)
  Sender: FDA-Public Use
  Company Number: PHHO2011MX01182

PATIENT
  Sex: Male
  Weight: 48 kg

DRUGS (5)
  1. FUROSEMIDE [Concomitant]
  2. PARACETAMOL [Concomitant]
  3. OMEPRAZOLE [Concomitant]
  4. STI571/CGP57148B [Suspect]
     Indication: GASTROINTESTINAL STROMAL TUMOUR
     Dosage: 800 MG
     Route: 048
  5. METOCLOPRAMIDE [Concomitant]

REACTIONS (5)
  - PERFORMANCE STATUS DECREASED [None]
  - GASTROINTESTINAL HAEMORRHAGE [None]
  - DISEASE PROGRESSION [None]
  - ENTEROCUTANEOUS FISTULA [None]
  - CARDIAC FAILURE [None]
